FAERS Safety Report 16463694 (Version 2)
Quarter: 2019Q3

REPORT INFORMATION
  Report Type: Report from Study
  Country: US (occurrence: US)
  Receive Date: 20190621
  Receipt Date: 20190807
  Transmission Date: 20191004
  Serious: Yes (Hospitalization)
  Sender: FDA-Public Use
  Company Number: US-MYLANLABS-2019M1058150

PATIENT
  Sex: Female

DRUGS (5)
  1. VYVANSE [Concomitant]
     Active Substance: LISDEXAMFETAMINE DIMESYLATE
     Dosage: 20 MILLIGRAM, QD
  2. CLOZAPINE. [Suspect]
     Active Substance: CLOZAPINE
     Indication: PSYCHOTIC DISORDER
     Dosage: 150 MILLIGRAM
     Dates: start: 201809
  3. LEXAPRO [Concomitant]
     Active Substance: ESCITALOPRAM OXALATE
     Dosage: 20 MILLIGRAM, QD
  4. CLOZAPINE. [Suspect]
     Active Substance: CLOZAPINE
     Dosage: 175 MILLIGRAM
     Dates: start: 201809
  5. CLOZAPINE. [Suspect]
     Active Substance: CLOZAPINE
     Dosage: UNK

REACTIONS (4)
  - Salivary hypersecretion [Unknown]
  - Sedation [Unknown]
  - Product use issue [Unknown]
  - Psychotic disorder [Unknown]
